FAERS Safety Report 23940898 (Version 1)
Quarter: 2024Q2

REPORT INFORMATION
  Report Type: Spontaneous
  Country: US (occurrence: US)
  Receive Date: 20240605
  Receipt Date: 20240605
  Transmission Date: 20240716
  Serious: No
  Sender: FDA-Public Use
  Company Number: US-HALEON-2180055

PATIENT
  Sex: Female

DRUGS (1)
  1. ADVIL COLD AND SINUS [Suspect]
     Active Substance: IBUPROFEN\PSEUDOEPHEDRINE HYDROCHLORIDE
     Indication: Product used for unknown indication
     Dosage: EXPDATE:20260831
     Dates: start: 20240603, end: 20240603

REACTIONS (5)
  - Oral discomfort [Not Recovered/Not Resolved]
  - Oropharyngeal pain [Unknown]
  - Aphthous ulcer [Unknown]
  - Swelling [Unknown]
  - Fatigue [Unknown]

NARRATIVE: CASE EVENT DATE: 20240603
